FAERS Safety Report 20874869 (Version 2)
Quarter: 2022Q2

REPORT INFORMATION
  Report Type: Spontaneous
  Country: DK (occurrence: DK)
  Receive Date: 20220526
  Receipt Date: 20220609
  Transmission Date: 20220720
  Serious: Yes (Other)
  Sender: FDA-Public Use
  Company Number: DK-TEVA-2022-DK-2039299

PATIENT
  Age: 70 Year
  Sex: Female

DRUGS (9)
  1. METOPROLOL [Suspect]
     Active Substance: METOPROLOL
     Indication: Ulcer
     Route: 065
  2. CARBAMAZEPINE [Suspect]
     Active Substance: CARBAMAZEPINE
     Indication: Ulcer
     Route: 065
  3. DAPSONE [Suspect]
     Active Substance: DAPSONE
     Indication: Linear IgA disease
     Dosage: 50 MILLIGRAM DAILY;
     Route: 065
  4. SULFAPYRIDINE [Concomitant]
     Active Substance: SULFAPYRIDINE
     Indication: Linear IgA disease
     Route: 065
  5. VALACYCLOVIR HYDROCHLORIDE [Concomitant]
     Active Substance: VALACYCLOVIR HYDROCHLORIDE
     Indication: Herpes simplex
     Route: 065
  6. AZATHIOPRINE [Concomitant]
     Active Substance: AZATHIOPRINE
     Indication: Pemphigoid
     Route: 065
  7. PREDNISOLONE [Concomitant]
     Active Substance: PREDNISOLONE
     Indication: Pemphigoid
     Route: 065
  8. DICLOXACILLIN [Concomitant]
     Active Substance: DICLOXACILLIN
     Indication: Staphylococcal infection
     Route: 065
  9. POTASSIUM PERMANGANATE [Concomitant]
     Active Substance: POTASSIUM PERMANGANATE
     Indication: Skin infection
     Route: 065

REACTIONS (3)
  - Linear IgA disease [Unknown]
  - Haemolysis [Unknown]
  - Neuropathy peripheral [Unknown]
